FAERS Safety Report 8504843 (Version 6)
Quarter: 2013Q2

REPORT INFORMATION
  Report Type: Report from Study
  Country: CA (occurrence: CA)
  Receive Date: 20120411
  Receipt Date: 20130403
  Transmission Date: 20140414
  Serious: Yes (Life-Threatening, Other)
  Sender: FDA-Public Use
  Company Number: CA-ROCHE-1054302

PATIENT
  Age: 62 Year
  Sex: Female
  Weight: 102.1 kg

DRUGS (21)
  1. ACTEMRA [Suspect]
     Indication: RHEUMATOID ARTHRITIS
     Route: 042
     Dates: start: 20120127, end: 20120127
  2. RITUXAN [Suspect]
     Indication: RHEUMATOID ARTHRITIS
     Route: 042
     Dates: start: 20081215, end: 20110221
  3. RITUXAN [Suspect]
     Route: 042
  4. RITUXAN [Suspect]
     Route: 042
     Dates: start: 20120820
  5. ATACAND PLUS [Concomitant]
  6. NIFEDIPINE [Concomitant]
  7. JANUVIA [Concomitant]
  8. DIAMICRON [Concomitant]
  9. GLICLAZIDE [Concomitant]
  10. DIPHENHYDRAMINE HCL [Concomitant]
     Indication: PREMEDICATION
     Route: 048
     Dates: start: 20120820, end: 20120820
  11. DIPHENHYDRAMINE HCL [Concomitant]
     Route: 048
     Dates: start: 20120904, end: 20120904
  12. DIPHENHYDRAMINE HCL [Concomitant]
     Route: 048
     Dates: start: 20090810
  13. ACETAMINOPHEN [Concomitant]
     Indication: PREMEDICATION
     Route: 048
     Dates: start: 20120820
  14. ACETAMINOPHEN [Concomitant]
     Route: 065
     Dates: start: 20120904, end: 20120904
  15. ACETAMINOPHEN [Concomitant]
     Route: 048
     Dates: start: 20090810
  16. ZOFRAN [Concomitant]
     Indication: PREMEDICATION
     Route: 048
     Dates: start: 20120820, end: 20120820
  17. ZOFRAN [Concomitant]
     Route: 065
     Dates: start: 20120904, end: 20120904
  18. METHYLPREDNISOLONE [Concomitant]
     Indication: PREMEDICATION
     Route: 042
     Dates: start: 20120820, end: 20120820
  19. METHYLPREDNISOLONE [Concomitant]
     Route: 065
     Dates: start: 20120904, end: 20120904
  20. METHYLPREDNISOLONE [Concomitant]
     Route: 042
     Dates: start: 20090810
  21. ZOFRAN [Concomitant]
     Route: 048
     Dates: start: 20120820, end: 20120904

REACTIONS (4)
  - Cerebrovascular accident [Unknown]
  - Drug intolerance [Unknown]
  - Infusion related reaction [Recovering/Resolving]
  - Headache [Recovered/Resolved]
